FAERS Safety Report 4323528-1 (Version None)
Quarter: 2004Q1

REPORT INFORMATION
  Report Type: 
  Country: None (occurrence: None)
  Receive Date: 20040324
  Receipt Date: 20040324
  Transmission Date: 20041129
  Serious: Yes (Life-Threatening, Hospitalization)
  Sender: FDA-Public Use
  Company Number: None

PATIENT
  Age: 34 Year
  Sex: Male
  Weight: 56.6996 kg

DRUGS (2)
  1. CELEXA [Suspect]
     Indication: DEPRESSION
     Dosage: 2 DAILY INTRAVENOUS
     Route: 042
     Dates: start: 19990424, end: 19990529
  2. CELEXA [Suspect]
     Indication: DEPRESSION
     Dosage: 2 DAILY INTRAVENOUS
     Route: 042
     Dates: start: 19990601, end: 20000314

REACTIONS (10)
  - APATHY [None]
  - CONFUSIONAL STATE [None]
  - DEPRESSED LEVEL OF CONSCIOUSNESS [None]
  - DEPRESSION [None]
  - DRUG ADDICT [None]
  - IMPAIRED SELF-CARE [None]
  - LOSS OF LIBIDO [None]
  - MENTAL DISORDER [None]
  - SUICIDAL IDEATION [None]
  - SUICIDE ATTEMPT [None]
